FAERS Safety Report 9897259 (Version 2)
Quarter: 2014Q1

REPORT INFORMATION
  Report Type: Report from Study
  Country: FR (occurrence: FR)
  Receive Date: 20140214
  Receipt Date: 20140214
  Transmission Date: 20141002
  Serious: Yes (Hospitalization)
  Sender: FDA-Public Use
  Company Number: FR-ROCHE-1164848

PATIENT
  Age: 61 Year
  Sex: Male

DRUGS (12)
  1. RITUXIMAB [Suspect]
     Indication: RHEUMATOID ARTHRITIS
     Dosage: DAY 1
     Route: 065
     Dates: start: 20071121
  2. RITUXIMAB [Suspect]
     Dosage: DAY 15
     Route: 065
     Dates: start: 20071206
  3. RITUXIMAB [Suspect]
     Dosage: DAY 1
     Route: 065
     Dates: start: 20080826
  4. RITUXIMAB [Suspect]
     Dosage: DAY 15
     Route: 065
     Dates: start: 20080908
  5. RITUXIMAB [Suspect]
     Dosage: DAY 1
     Route: 065
     Dates: start: 20130130
  6. RITUXIMAB [Suspect]
     Dosage: DAY 15
     Route: 065
     Dates: start: 20130215
  7. CORTANCYL [Concomitant]
     Route: 065
     Dates: start: 20071206
  8. CORTANCYL [Concomitant]
     Route: 065
     Dates: start: 20080908
  9. CORTANCYL [Concomitant]
     Route: 065
     Dates: start: 20090723
  10. CORTANCYL [Concomitant]
     Route: 065
     Dates: start: 20100330
  11. CORTANCYL [Concomitant]
     Route: 065
     Dates: start: 20101130
  12. CORTANCYL [Concomitant]
     Route: 065
     Dates: start: 20130215

REACTIONS (10)
  - Chest pain [Recovered/Resolved]
  - Dyspepsia [Unknown]
  - Hypertension [Unknown]
  - Urinary tract infection [Recovered/Resolved]
  - Fall [Unknown]
  - Hyperkeratosis [Not Recovered/Not Resolved]
  - Skin papilloma [Not Recovered/Not Resolved]
  - Dermatophytosis [Not Recovered/Not Resolved]
  - Onychomycosis [Not Recovered/Not Resolved]
  - Depression [Not Recovered/Not Resolved]
